FAERS Safety Report 6499074-6 (Version None)
Quarter: 2009Q4

REPORT INFORMATION
  Report Type: 
  Country: None (occurrence: None)
  Receive Date: 20091127
  Receipt Date: 20081029
  Transmission Date: 20100525
  Serious: Yes (Life-Threatening, Disabling)
  Sender: FDA-Public Use
  Company Number: WAES 0502USA02687

PATIENT
  Age: 57 Year
  Sex: Female
  Weight: 42.6381 kg

DRUGS (9)
  1. FOSAMAX [Suspect]
     Indication: OSTEOPOROSIS
     Dosage: 10 MG/DAILY/PO
     Route: 048
     Dates: start: 19950101, end: 20000201
  2. AREDIA [Suspect]
     Indication: OSTEOPOROSIS
     Dosage: 90 MG/MTH/IV
     Route: 042
     Dates: start: 19991201, end: 20030801
  3. ZOMETA [Suspect]
  4. FIORICET TABLETS [Concomitant]
  5. SYNTHROID [Concomitant]
  6. THERAPY UNSPECIFIED [Concomitant]
  7. ALBUTEROL [Concomitant]
  8. CALCIUM [Concomitant]
  9. CHLORPHENIRAMINE MALEATE [Concomitant]

REACTIONS (17)
  - ADVERSE DRUG REACTION [None]
  - BACK PAIN [None]
  - BLOOD CHOLESTEROL INCREASED [None]
  - DRUG HYPERSENSITIVITY [None]
  - DRUG INEFFECTIVE [None]
  - FOOD ALLERGY [None]
  - GASTROINTESTINAL DISORDER [None]
  - HAEMORRHAGE [None]
  - INCISION SITE COMPLICATION [None]
  - IRON DEFICIENCY ANAEMIA [None]
  - MASS [None]
  - NECK PAIN [None]
  - NERVE INJURY [None]
  - OSTEOLYSIS [None]
  - OSTEONECROSIS [None]
  - TOOTH DISCOLOURATION [None]
  - TOOTH FRACTURE [None]
